FAERS Safety Report 13070933 (Version 2)
Quarter: 2017Q1

REPORT INFORMATION
  Report Type: Spontaneous
  Country: JP (occurrence: JP)
  Receive Date: 20161229
  Receipt Date: 20170329
  Transmission Date: 20170428
  Serious: Yes (Hospitalization, Other)
  Sender: FDA-Public Use
  Company Number: PHJP2016JP038100

PATIENT
  Age: 55 Year
  Sex: Male

DRUGS (3)
  1. TASIGNA [Suspect]
     Active Substance: NILOTINIB
     Dosage: 300 MG, UNK
     Route: 048
     Dates: start: 20161223, end: 20161224
  2. TASIGNA [Suspect]
     Active Substance: NILOTINIB
     Dosage: 300 MG, ONCE/SINGLE
     Route: 048
     Dates: start: 20161219, end: 20161219
  3. TASIGNA [Suspect]
     Active Substance: NILOTINIB
     Indication: CHRONIC MYELOID LEUKAEMIA
     Dosage: 600 MG, QD
     Route: 048
     Dates: start: 201303, end: 20161218

REACTIONS (5)
  - Appendicitis [Recovered/Resolved]
  - Chest pain [Unknown]
  - Ventricular tachycardia [Unknown]
  - Hypertension [Recovered/Resolved]
  - Acute myocardial infarction [Recovered/Resolved]

NARRATIVE: CASE EVENT DATE: 20161209
